FAERS Safety Report 23377383 (Version 2)
Quarter: 2024Q4

REPORT INFORMATION
  Report Type: Spontaneous
  Country: US (occurrence: US)
  Receive Date: 20240108
  Receipt Date: 20241118
  Transmission Date: 20250115
  Serious: No
  Sender: SANOFI AVENTIS
  Company Number: US-SA-SAC20231229001178

PATIENT
  Sex: Male

DRUGS (1)
  1. DUPIXENT [Suspect]
     Active Substance: DUPILUMAB
     Indication: Dermatitis allergic
     Dosage: 300 MG, QOW
     Route: 058

REACTIONS (7)
  - Joint swelling [Unknown]
  - Hypoaesthesia oral [Unknown]
  - Skin swelling [Unknown]
  - Facial discomfort [Unknown]
  - Arthritis [Unknown]
  - Visual impairment [Unknown]
  - Skin exfoliation [Unknown]
